FAERS Safety Report 13818354 (Version 1)
Quarter: 2017Q3

REPORT INFORMATION
  Report Type: Spontaneous
  Country: US (occurrence: US)
  Receive Date: 20170731
  Receipt Date: 20170731
  Transmission Date: 20171127
  Serious: No
  Sender: FDA-Public Use
  Company Number: US-ROCHE-612160

PATIENT
  Age: 70 Year
  Sex: Female
  Weight: 71.7 kg

DRUGS (1)
  1. BONIVA [Suspect]
     Active Substance: IBANDRONATE SODIUM
     Indication: OSTEOPOROSIS
     Dosage: DOSE REPORTED AS 3 MG/3ML
     Route: 042

REACTIONS (4)
  - Foreign body sensation in eyes [Not Recovered/Not Resolved]
  - Depression [Recovered/Resolved]
  - Feeling jittery [Recovered/Resolved]
  - Constipation [Unknown]

NARRATIVE: CASE EVENT DATE: 20090129
